FAERS Safety Report 8097818-3 (Version None)
Quarter: 2012Q1

REPORT INFORMATION
  Report Type: 
  Country: None (occurrence: None)
  Receive Date: 20120128
  Receipt Date: 20110804
  Transmission Date: 20120608
  Serious: Yes (Hospitalization, Other)
  Sender: FDA-Public Use
  Company Number: US-ABBOTT-11P-163-0844311-00

PATIENT
  Age: 58 Year
  Sex: Female

DRUGS (15)
  1. HUMIRA [Suspect]
     Route: 058
     Dates: start: 20110101
  2. TRIAMTERENE [Concomitant]
     Indication: FLUID RETENTION
     Dosage: 75/50MG DAILY
  3. CELEBREX [Concomitant]
     Indication: RHEUMATOID ARTHRITIS
  4. HUMIRA [Suspect]
     Indication: RHEUMATOID ARTHRITIS
     Route: 058
     Dates: start: 20030601, end: 20061225
  5. CLARITIN [Concomitant]
     Indication: ALLERGIC SINUSITIS
  6. PLAQUENIL [Concomitant]
     Indication: RHEUMATOID ARTHRITIS
  7. VERAMYST [Concomitant]
     Indication: ALLERGIC SINUSITIS
     Route: 045
  8. HUMIRA [Suspect]
     Route: 058
     Dates: start: 20070115, end: 20080201
  9. PREDNISONE TAB [Concomitant]
     Indication: RHEUMATOID ARTHRITIS
  10. METHOTREXATE [Concomitant]
     Indication: RHEUMATOID ARTHRITIS
  11. FOLIC ACID [Concomitant]
     Indication: RHEUMATOID ARTHRITIS
  12. VERAPAMIL [Concomitant]
     Indication: CARDIAC DISORDER
  13. NEXIUM [Concomitant]
     Indication: GASTROOESOPHAGEAL REFLUX DISEASE
  14. POTASSIUM [Concomitant]
     Indication: MINERAL SUPPLEMENTATION
  15. TRAMADOL HCL [Concomitant]
     Indication: PAIN

REACTIONS (12)
  - CELLULITIS [None]
  - HYPERTENSION [None]
  - ARTHRALGIA [None]
  - PRURITUS GENERALISED [None]
  - INSOMNIA [None]
  - OESOPHAGEAL DILATATION [None]
  - ACARODERMATITIS [None]
  - BRONCHITIS [None]
  - HIATUS HERNIA [None]
  - STAPHYLOCOCCAL INFECTION [None]
  - URINARY TRACT INFECTION [None]
  - DIVERTICULUM [None]
